FAERS Safety Report 5692020-4 (Version None)
Quarter: 2008Q2

REPORT INFORMATION
  Report Type: 
  Country: None (occurrence: None)
  Receive Date: 20080402
  Receipt Date: 20080328
  Transmission Date: 20081010
  Serious: Yes (Hospitalization)
  Sender: FDA-Public Use
  Company Number: US-MERCK-0803USA04929

PATIENT
  Age: 16 Year
  Sex: Male

DRUGS (3)
  1. SINGULAIR [Suspect]
     Indication: SEASONAL ALLERGY
     Route: 048
     Dates: start: 20060901, end: 20080327
  2. KLONOPIN [Concomitant]
     Route: 065
  3. GUANFACINE HYDROCHLORIDE [Concomitant]
     Route: 065

REACTIONS (2)
  - ANXIETY [None]
  - MUSCLE TWITCHING [None]
